FAERS Safety Report 13335578 (Version 5)
Quarter: 2017Q4

REPORT INFORMATION
  Report Type: Spontaneous
  Country: JP (occurrence: JP)
  Receive Date: 20170314
  Receipt Date: 20171205
  Transmission Date: 20180320
  Serious: Yes (Other)
  Sender: FDA-Public Use
  Company Number: JP-BRISTOL-MYERS SQUIBB COMPANY-BMS-2017-012735

PATIENT
  Age: 58 Year
  Sex: Male

DRUGS (1)
  1. NIVOLUMAB [Suspect]
     Active Substance: NIVOLUMAB
     Indication: NON-SMALL CELL LUNG CANCER RECURRENT
     Dosage: UNK
     Route: 065
     Dates: start: 201612

REACTIONS (6)
  - Myocarditis [Unknown]
  - Cytomegalovirus infection [Unknown]
  - Pulmonary tuberculosis [Unknown]
  - Radiation pneumonitis [Recovering/Resolving]
  - Interstitial lung disease [Unknown]
  - Lymphopenia [Unknown]

NARRATIVE: CASE EVENT DATE: 201701
